FAERS Safety Report 8390213-9 (Version None)
Quarter: 2012Q1

REPORT INFORMATION
  Report Type: 
  Country: None (occurrence: None)
  Receive Date: 20120323
  Receipt Date: 20110331
  Transmission Date: 20120608
  Serious: Yes (Other)
  Sender: FDA-Public Use
  Company Number: 163-21880-11040208

PATIENT
  Age: 72 Year
  Sex: Male
  Weight: 255.6 kg

DRUGS (2)
  1. REVLIMID [Suspect]
     Indication: MULTIPLE MYELOMA
     Dosage: 5 MG, 1 IN 1 D, PO  , 2.5 MG, 1 IN 2 D, PO
     Route: 048
     Dates: start: 20110401
  2. REVLIMID [Suspect]
     Indication: MULTIPLE MYELOMA
     Dosage: 5 MG, 1 IN 1 D, PO  , 2.5 MG, 1 IN 2 D, PO
     Route: 048
     Dates: start: 20100322, end: 20110101

REACTIONS (2)
  - ARTHRALGIA [None]
  - PLATELET COUNT DECREASED [None]
